FAERS Safety Report 9199574 (Version 1)
Quarter: 2013Q1

REPORT INFORMATION
  Report Type: Spontaneous
  Country: US (occurrence: US)
  Receive Date: 20130329
  Receipt Date: 20130329
  Transmission Date: 20140127
  Serious: No
  Sender: FDA-Public Use
  Company Number: US-GLAXOSMITHKLINE-A1007326A

PATIENT
  Age: 38 Year
  Sex: Female

DRUGS (17)
  1. BENLYSTA [Suspect]
     Indication: SYSTEMIC LUPUS ERYTHEMATOSUS
     Route: 042
     Dates: start: 20120319
  2. PREDNISONE [Concomitant]
  3. METHOTREXATE [Concomitant]
  4. GABAPENTIN [Concomitant]
  5. PROTONIX [Concomitant]
  6. VITAMIN D [Concomitant]
  7. MORPHINE [Concomitant]
  8. POTASSIUM [Concomitant]
  9. OXYCODONE [Concomitant]
  10. FOLIC ACID [Concomitant]
  11. LASIX [Concomitant]
  12. PLAQUENIL [Concomitant]
  13. CLONAZEPAM [Concomitant]
  14. SOMA [Concomitant]
  15. CIPRO [Concomitant]
  16. LIDODERM PATCH [Concomitant]
  17. LEVOTHYROXINE [Concomitant]

REACTIONS (1)
  - Pruritus generalised [Recovering/Resolving]
